FAERS Safety Report 19487495 (Version 2)
Quarter: 2021Q3

REPORT INFORMATION
  Report Type: Spontaneous
  Country: KR (occurrence: KR)
  Receive Date: 20210702
  Receipt Date: 20210709
  Transmission Date: 20211014
  Serious: Yes (Hospitalization, Other)
  Sender: FDA-Public Use
  Company Number: KR-SA-2021SA216764

PATIENT
  Age: 29 Year
  Sex: Male

DRUGS (1)
  1. RENVELA [Suspect]
     Active Substance: SEVELAMER CARBONATE
     Indication: HYPERPHOSPHATAEMIA
     Dosage: UNK

REACTIONS (4)
  - Rectal ulcer [Unknown]
  - Diarrhoea haemorrhagic [Unknown]
  - Crystal deposit intestine [Unknown]
  - Intestinal mass [Unknown]
